FAERS Safety Report 14484123 (Version 4)
Quarter: 2021Q1

REPORT INFORMATION
  Report Type: Other
  Country: US (occurrence: US)
  Receive Date: 20180205
  Receipt Date: 20210318
  Transmission Date: 20210419
  Serious: Yes (Other)
  Sender: FDA-Public Use
  Company Number: US-ROCHE-1664610

PATIENT
  Age: 66 Year

DRUGS (2)
  1. RITUXIMAB. [Suspect]
     Active Substance: RITUXIMAB
     Indication: MANTLE CELL LYMPHOMA
     Dosage: INDUCTION PHASE: WEEKLY X 4 DURING CYCLE 1, THEN ONCE EVERY OTHER CYCLE, FOR A TOTAL OF 9 DOSES.
     Route: 042
  2. LENALIDOMIDE [Suspect]
     Active Substance: LENALIDOMIDE
     Indication: MANTLE CELL LYMPHOMA
     Dosage: INDUCTION PHASE: 20?25MG/DAY ON DAYS 1?21 OF A 28?DAY CYCLE FOR A TOTAL OF 12 CYCLES (CREATININE CLE
     Route: 065

REACTIONS (1)
  - Tumour flare [Recovered/Resolved]
